FAERS Safety Report 10051224 (Version 1)
Quarter: 2014Q2

REPORT INFORMATION
  Report Type: Spontaneous
  Country: US (occurrence: US)
  Receive Date: 20140401
  Receipt Date: 20140401
  Transmission Date: 20141212
  Serious: No
  Sender: FDA-Public Use
  Company Number: US-BAYER-2014-038465

PATIENT
  Age: 54 Year
  Sex: Male
  Weight: 79 kg

DRUGS (2)
  1. BAYER ASPIRIN REGIMEN ADULT LOW STRENGTH [Suspect]
     Dosage: 2 DF, QD
     Route: 048
  2. ALEVE GELCAPS [Suspect]
     Dosage: 2 DF, QD
     Route: 048
     Dates: start: 201402

REACTIONS (2)
  - Incorrect drug administration duration [None]
  - Medication error [None]
